FAERS Safety Report 6359102-5 (Version None)
Quarter: 2009Q3

REPORT INFORMATION
  Report Type: 
  Country: None (occurrence: None)
  Receive Date: 20090917
  Receipt Date: 20070525
  Transmission Date: 20100115
  Serious: Yes (Other)
  Sender: FDA-Public Use
  Company Number: US-ASTRAZENECA-2006UW07911

PATIENT
  Age: 42 Year
  Sex: Female
  Weight: 126.1 kg

DRUGS (13)
  1. SEROQUEL [Suspect]
     Indication: DEPRESSION
     Dosage: 200 MG - 300 MG
     Route: 048
     Dates: start: 20010417, end: 20071201
  2. SEROQUEL [Suspect]
     Indication: SLEEP DISORDER
     Dosage: 200 MG - 300 MG
     Route: 048
     Dates: start: 20010417, end: 20071201
  3. SEROQUEL [Suspect]
     Indication: ANXIETY
     Dosage: 200 MG - 300 MG
     Route: 048
     Dates: start: 20010417, end: 20071201
  4. SEROQUEL [Suspect]
     Dosage: 25 MG ONE OR TWO AT NIGHT, 200 MG 2 AT NIGHT FOR 3 DAYS, 1 AT NIGHT FOR 3 DAYS, 300MG DAILY
     Route: 048
     Dates: start: 20010417
  5. SEROQUEL [Suspect]
     Dosage: 25 MG ONE OR TWO AT NIGHT, 200 MG 2 AT NIGHT FOR 3 DAYS, 1 AT NIGHT FOR 3 DAYS, 300MG DAILY
     Route: 048
     Dates: start: 20010417
  6. SEROQUEL [Suspect]
     Dosage: 25 MG ONE OR TWO AT NIGHT, 200 MG 2 AT NIGHT FOR 3 DAYS, 1 AT NIGHT FOR 3 DAYS, 300MG DAILY
     Route: 048
     Dates: start: 20010417
  7. ABILIFY [Concomitant]
     Dates: start: 20060101
  8. ZYPREXA [Concomitant]
     Dosage: 5 MG - 20 MG
     Dates: start: 20021118, end: 20050806
  9. BUSPAR [Concomitant]
     Route: 048
     Dates: start: 20021118
  10. FLUOXETINE [Concomitant]
     Route: 048
     Dates: start: 20060101
  11. TRAZODONE HCL [Concomitant]
     Route: 048
     Dates: start: 20060101, end: 20070101
  12. ZOLOFT [Concomitant]
     Dosage: 100 MG TWO EVERY MORNING
     Route: 048
     Dates: start: 20021118
  13. NEURONTIN [Concomitant]
     Dosage: 300 MG ONE THREE TIMES DAILY FOR THREE DAYS THEN TWO TIMES DAILY FOR THREE DAYS AND THEN ONCE
     Route: 048
     Dates: start: 20021118

REACTIONS (16)
  - ANGINA PECTORIS [None]
  - BLOOD CHOLESTEROL INCREASED [None]
  - BLOOD TRIGLYCERIDES INCREASED [None]
  - BREAST OPERATION [None]
  - CARDIAC DISORDER [None]
  - CHOLECYSTECTOMY [None]
  - CHOLECYSTITIS CHRONIC [None]
  - CHOLELITHIASIS [None]
  - CONVULSION [None]
  - CORONARY ARTERY DISEASE [None]
  - DIABETES MELLITUS [None]
  - DRUG INEFFECTIVE [None]
  - MIGRAINE [None]
  - OBESITY [None]
  - TYPE 2 DIABETES MELLITUS [None]
  - WEIGHT INCREASED [None]
